FAERS Safety Report 24940091 (Version 5)
Quarter: 2025Q1

REPORT INFORMATION
  Report Type: Spontaneous
  Country: US (occurrence: US)
  Receive Date: 20250207
  Receipt Date: 20250331
  Transmission Date: 20250408
  Serious: Yes (Hospitalization)
  Sender: AMNEAL
  Company Number: US-AMNEAL PHARMACEUTICALS-2025-AMRX-00423

PATIENT
  Age: 75 Year
  Sex: Male

DRUGS (3)
  1. CREXONT [Suspect]
     Active Substance: CARBIDOPA\LEVODOPA
     Indication: Parkinson^s disease
     Dosage: 35/140 MG, 1 CAPSULES, BID
     Route: 048
  2. CREXONT [Suspect]
     Active Substance: CARBIDOPA\LEVODOPA
     Dosage: 2 CAPSULES, QD
     Route: 048
  3. CREXONT [Suspect]
     Active Substance: CARBIDOPA\LEVODOPA
     Dosage: 3 CAPSULES, QD
     Route: 048
     Dates: start: 20250310

REACTIONS (3)
  - Constipation [Recovered/Resolved]
  - Drug effect less than expected [Unknown]
  - Product use issue [Unknown]

NARRATIVE: CASE EVENT DATE: 20250204
